FAERS Safety Report 5355150-2 (Version None)
Quarter: 2007Q2

REPORT INFORMATION
  Report Type: 
  Country: None (occurrence: None)
  Receive Date: 20070613
  Receipt Date: 20070530
  Transmission Date: 20071010
  Serious: Yes (Other)
  Sender: FDA-Public Use
  Company Number: CA-ELI_LILLY_AND_COMPANY-CA200706002227

PATIENT
  Age: 57 Year
  Sex: Male

DRUGS (2)
  1. ZYPREXA [Suspect]
     Indication: DEPRESSION
     Dosage: 10 MG, 2/D
     Dates: start: 20050101, end: 20070301
  2. EFFEXOR [Concomitant]
     Indication: DEPRESSION

REACTIONS (2)
  - PATHOLOGICAL GAMBLING [None]
  - TREATMENT FAILURE [None]
